FAERS Safety Report 16570150 (Version 1)
Quarter: 2019Q3

REPORT INFORMATION
  Report Type: Spontaneous
  Country: US (occurrence: US)
  Receive Date: 20190715
  Receipt Date: 20190715
  Transmission Date: 20191004
  Serious: Yes (Hospitalization, Other)
  Sender: FDA-Public Use
  Company Number: US-ACCORD-138369

PATIENT
  Age: 89 Year
  Sex: Male

DRUGS (1)
  1. TEMOZOLOMIDE. [Suspect]
     Active Substance: TEMOZOLOMIDE
     Indication: GLIOBLASTOMA MULTIFORME
     Dosage: STARTED AT A DOSE OF 150 MG/M2

REACTIONS (2)
  - Aplastic anaemia [Unknown]
  - Non-Hodgkin^s lymphoma [Unknown]
